FAERS Safety Report 19145629 (Version 1)
Quarter: 2021Q2

REPORT INFORMATION
  Report Type: Spontaneous
  Country: US (occurrence: US)
  Receive Date: 20210416
  Receipt Date: 20210416
  Transmission Date: 20210717
  Serious: Yes (Death, Hospitalization, Other)
  Sender: FDA-Public Use
  Company Number: US-GLAXOSMITHKLINE-US2021081847

PATIENT
  Age: 61 Year
  Sex: Female

DRUGS (1)
  1. BENLYSTA [Suspect]
     Active Substance: BELIMUMAB
     Indication: SYSTEMIC LUPUS ERYTHEMATOSUS
     Dosage: 200 MG, Z,ONCE A MONTH
     Route: 042
     Dates: start: 20201124

REACTIONS (3)
  - Cardiac arrest [Fatal]
  - Hip fracture [Unknown]
  - Fungal infection [Unknown]

NARRATIVE: CASE EVENT DATE: 202012
